APPROVED DRUG PRODUCT: SUMATRIPTAN SUCCINATE
Active Ingredient: SUMATRIPTAN SUCCINATE
Strength: EQ 100MG BASE
Dosage Form/Route: TABLET;ORAL
Application: A077163 | Product #003
Applicant: MYLAN PHARMACEUTICALS INC
Approved: Nov 2, 2009 | RLD: No | RS: No | Type: DISCN